FAERS Safety Report 10238819 (Version 1)
Quarter: 2014Q2

REPORT INFORMATION
  Report Type: Spontaneous
  Country: US (occurrence: None)
  Receive Date: 20140612
  Receipt Date: 20140612
  Transmission Date: 20141212
  Serious: Yes (Death)
  Sender: FDA-Public Use
  Company Number: FK201402303

PATIENT
  Age: 11 Year
  Sex: Female

DRUGS (6)
  1. CARBOPLATIN [Suspect]
     Indication: ASTROCYTOMA, LOW GRADE
  2. VINCRISTINE [Suspect]
     Indication: ASTROCYTOMA, LOW GRADE
  3. LEVOTHYROXINE (LEVOTHYROXINE) [Concomitant]
  4. ONDANSETRON (ONDANSETRON) [Concomitant]
  5. OMEPRAZOLE (OMEPRAZOLE) [Concomitant]
  6. TRIMETHOPRIM SULFAMETHOXAZOLE (BACTRIM) [Concomitant]

REACTIONS (21)
  - Haemolytic anaemia [None]
  - Abdominal pain [None]
  - Diarrhoea [None]
  - Tachypnoea [None]
  - Tachycardia [None]
  - Hypertension [None]
  - Hypoxia [None]
  - Abdominal tenderness [None]
  - Renal failure acute [None]
  - Hepatitis [None]
  - Haemolytic uraemic syndrome [None]
  - Sepsis [None]
  - Disseminated intravascular coagulation [None]
  - Multi-organ failure [None]
  - Shock [None]
  - Haemophilus infection [None]
  - Hepatic steatosis [None]
  - Bronchopulmonary aspergillosis [None]
  - Lethargy [None]
  - Brain oedema [None]
  - Brain oedema [None]
